FAERS Safety Report 6903357-2 (Version None)
Quarter: 2010Q3

REPORT INFORMATION
  Report Type: 
  Country: None (occurrence: None)
  Receive Date: 20100803
  Receipt Date: 20080922
  Transmission Date: 20110219
  Serious: No
  Sender: FDA-Public Use
  Company Number: US-PFIZER INC-2008059470

PATIENT
  Sex: Male
  Weight: 159 kg

DRUGS (21)
  1. LYRICA [Suspect]
     Indication: NEURALGIA
     Route: 048
     Dates: start: 20061101
  2. LYRICA [Suspect]
     Indication: PERIPHERAL NERVE INJURY
  3. CELEBREX [Suspect]
     Indication: PAIN
  4. OXYMORPHONE HYDROCHLORIDE [Concomitant]
     Dates: start: 20080825
  5. CELEXA [Concomitant]
     Dates: start: 20080825
  6. TRAZODONE [Concomitant]
     Dates: start: 20080701
  7. ANDROGEL [Concomitant]
  8. AMITIZA [Concomitant]
  9. DICLOFENAC [Concomitant]
  10. SOMA [Concomitant]
  11. BACLOFEN [Concomitant]
     Dates: start: 20080827
  12. AMITIZA [Concomitant]
     Dates: start: 20080827
  13. OXYMORPHONE [Concomitant]
     Dates: start: 20080903
  14. MORPHINE SULFATE [Concomitant]
     Dates: start: 20080825
  15. NEBIVOLOL [Concomitant]
     Dates: start: 20080815
  16. SENOKOT [Concomitant]
     Dates: start: 20080804
  17. ANDROGEL [Concomitant]
     Dates: start: 20080804
  18. LISINOPRIL [Concomitant]
     Dates: start: 20080715
  19. VIAGRA [Concomitant]
     Dates: start: 20080702
  20. OTHER DERMATOLOGICAL PREPARATIONS [Concomitant]
     Dates: start: 20080602
  21. ALPRAZOLAM [Concomitant]
     Dates: start: 20080131

REACTIONS (3)
  - OEDEMA PERIPHERAL [None]
  - PAIN IN EXTREMITY [None]
  - WEIGHT DECREASED [None]
